FAERS Safety Report 9176568 (Version 2)
Quarter: 2013Q2

REPORT INFORMATION
  Report Type: Report from Study
  Country: US (occurrence: US)
  Receive Date: 20130321
  Receipt Date: 20130408
  Transmission Date: 20140414
  Serious: Yes (Hospitalization)
  Sender: FDA-Public Use
  Company Number: US-JNJFOC-20130309453

PATIENT
  Age: 15 Year
  Sex: Male
  Weight: 75.3 kg

DRUGS (2)
  1. REMICADE [Suspect]
     Indication: INFLAMMATORY BOWEL DISEASE
     Route: 042
     Dates: start: 20070308
  2. 5-ASA [Concomitant]
     Route: 048

REACTIONS (1)
  - Constipation [Recovered/Resolved]
